FAERS Safety Report 12092323 (Version 1)
Quarter: 2016Q1

REPORT INFORMATION
  Report Type: Spontaneous
  Country: US (occurrence: None)
  Receive Date: 20160217
  Receipt Date: 20160217
  Transmission Date: 20160526
  Serious: Yes (Other)
  Sender: FDA-Public Use
  Company Number: None

PATIENT
  Age: 60 Year
  Sex: Male

DRUGS (7)
  1. HARVONI [Suspect]
     Active Substance: LEDIPASVIR\SOFOSBUVIR
     Indication: HEPATITIS C
     Dosage: 90-400 MG, 1 TAB DAILY, BY MOUTH
     Route: 048
     Dates: start: 20160106
  2. STROVITE [Concomitant]
  3. APAP/CODEINE [Concomitant]
     Active Substance: ACETAMINOPHEN\CODEINE PHOSPHATE
  4. LAMIVUD/SIDO [Concomitant]
  5. KALETRA [Concomitant]
     Active Substance: LOPINAVIR\RITONAVIR
  6. VALSARTAN. [Concomitant]
     Active Substance: VALSARTAN
  7. MULTILE VIT. [Concomitant]

REACTIONS (1)
  - Condition aggravated [None]

NARRATIVE: CASE EVENT DATE: 20160207
